FAERS Safety Report 14778253 (Version 2)
Quarter: 2018Q3

REPORT INFORMATION
  Report Type: Spontaneous
  Country: PL (occurrence: PL)
  Receive Date: 20180419
  Receipt Date: 20180706
  Transmission Date: 20181010
  Serious: Yes (Hospitalization, Other)
  Sender: FDA-Public Use
  Company Number: PL-AUROBINDO-AUR-APL-2018-020371

PATIENT
  Age: 11 Year
  Sex: Female

DRUGS (3)
  1. METOPROLOL. [Suspect]
     Active Substance: METOPROLOL
     Indication: TACHYCARDIA
     Dosage: UNK
     Route: 065
  2. PROPRANOLOL [Suspect]
     Active Substance: PROPRANOLOL HYDROCHLORIDE
     Indication: TACHYCARDIA
     Dosage: UNK
     Route: 065
  3. MAGNESIUM [Suspect]
     Active Substance: MAGNESIUM
     Indication: SUPPLEMENTATION THERAPY
     Dosage: UNK
     Route: 065

REACTIONS (2)
  - Hypertriglyceridaemia [Unknown]
  - Arrhythmia [Recovered/Resolved]
